FAERS Safety Report 9315837 (Version 1)
Quarter: 2013Q2

REPORT INFORMATION
  Report Type: Spontaneous
  Country: GB (occurrence: GB)
  Receive Date: 20130529
  Receipt Date: 20130529
  Transmission Date: 20140414
  Serious: Yes (Disabling)
  Sender: FDA-Public Use
  Company Number: GB-ABBOTT-13X-167-1094534-00

PATIENT
  Age: 85 Year
  Sex: Female
  Weight: 80 kg

DRUGS (5)
  1. CLARITHROMYCIN [Suspect]
     Indication: VULVAL ABSCESS
     Dosage: CUMULATIVE DOSE TO 1ST RXN:2000MG
     Route: 048
     Dates: start: 20130502, end: 20130507
  2. ATENOLOL [Concomitant]
     Indication: HYPERTENSION
     Route: 048
  3. SIMVASTATIN [Concomitant]
     Indication: PRODUCT USED FOR UNKNOWN INDICATION
  4. LISINOPRIL [Concomitant]
     Indication: PRODUCT USED FOR UNKNOWN INDICATION
     Route: 048
  5. ALENDRONIC ACID [Concomitant]
     Indication: OSTEOPOROSIS
     Route: 048

REACTIONS (2)
  - Hyperacusis [Unknown]
  - Deafness [Unknown]
